FAERS Safety Report 5357732-0 (Version None)
Quarter: 2007Q2

REPORT INFORMATION
  Report Type: 
  Country: None (occurrence: None)
  Receive Date: 20070614
  Receipt Date: 20070612
  Transmission Date: 20071010
  Serious: Yes (Hospitalization, Disabling)
  Sender: FDA-Public Use
  Company Number: CN-BOEHRINGER INGELHEIM PHARMACEUTICALS, INC.-2007-BP-07161SG

PATIENT

DRUGS (2)
  1. APTIVUS/RITONAVIR CAPSULES [Suspect]
     Route: 048
  2. TRUVADA [Concomitant]

REACTIONS (2)
  - HAEMORRHAGE SUBCUTANEOUS [None]
  - MUSCLE HAEMORRHAGE [None]
